FAERS Safety Report 5748592-4 (Version None)
Quarter: 2008Q2

REPORT INFORMATION
  Report Type: 
  Country: None (occurrence: None)
  Receive Date: 20080523
  Receipt Date: 20080514
  Transmission Date: 20081010
  Serious: Yes (Other)
  Sender: FDA-Public Use
  Company Number: DE-PFIZER INC-2008043010

PATIENT
  Sex: Female

DRUGS (1)
  1. VIAGRA [Suspect]

REACTIONS (1)
  - CAESAREAN SECTION [None]
